FAERS Safety Report 7883556-6 (Version None)
Quarter: 2011Q4

REPORT INFORMATION
  Report Type: 
  Country: None (occurrence: None)
  Receive Date: 20111102
  Receipt Date: 20111026
  Transmission Date: 20120403
  Serious: Yes (Other)
  Sender: FDA-Public Use
  Company Number: GB-EISAI INC-E2090-01151-SPO-GB

PATIENT
  Age: 10 Year
  Sex: Male
  Weight: 42.6 kg

DRUGS (6)
  1. ZONEGRAN [Suspect]
     Indication: EPILEPSY
     Dosage: UNKNOWN
     Route: 048
  2. ZONEGRAN [Suspect]
     Route: 048
     Dates: start: 20111001, end: 20111001
  3. ZONEGRAN [Suspect]
     Route: 048
     Dates: start: 20070101, end: 20070101
  4. ZONEGRAN [Suspect]
     Dosage: 200MG AM, 175 MG PM
     Route: 048
     Dates: end: 20111001
  5. ZONEGRAN [Suspect]
     Dosage: REDUCED DOSE UNKNOWN
     Route: 048
     Dates: start: 20111001
  6. VALPROATE SODIUM [Concomitant]
     Dosage: 400 MG
     Route: 048

REACTIONS (10)
  - ABNORMAL BEHAVIOUR [None]
  - AGITATION [None]
  - RASH [None]
  - CATARACT [None]
  - DRUG INEFFECTIVE [None]
  - FATIGUE [None]
  - SLEEP DISORDER [None]
  - OFF LABEL USE [None]
  - CRYING [None]
  - SCREAMING [None]
